FAERS Safety Report 8796434 (Version 2)
Quarter: 2012Q4

REPORT INFORMATION
  Report Type: 
  Country: US (occurrence: US)
  Receive Date: 20120919
  Receipt Date: 20121015
  Transmission Date: 20130627
  Serious: Yes (Other)
  Sender: FDA-Public Use
  Company Number: US-ASTRAZENECA-2012SE70817

PATIENT
  Age: 72 Year
  Sex: Male

DRUGS (20)
  1. CAPRELSA [Suspect]
     Indication: THYROID CANCER
     Route: 048
     Dates: start: 20120725
  2. OMEPRAZOLE [Suspect]
     Route: 048
  3. ADVAIR DISKUS [Concomitant]
  4. ALLOPURINOL [Concomitant]
  5. DETROL LA [Concomitant]
  6. LOPRESSOR [Concomitant]
  7. MELATONIN [Concomitant]
  8. MOTRIN [Concomitant]
  9. MULTIVITAMINS [Concomitant]
  10. NEUROTIN [Concomitant]
  11. SYTHROID [Concomitant]
  12. VIT C [Concomitant]
  13. ZOMETA [Concomitant]
  14. CITALOPRAM [Concomitant]
  15. DETROL [Concomitant]
  16. NEURONTIN [Concomitant]
  17. OMEPRAZOLE [Concomitant]
  18. OXYCODONE [Concomitant]
  19. SYNTHROID [Concomitant]
  20. UROXATRAL [Concomitant]
     Dosage: REDUCED

REACTIONS (3)
  - Electrocardiogram QT prolonged [Unknown]
  - Hypertension [Recovering/Resolving]
  - Fatigue [Unknown]
